FAERS Safety Report 10652079 (Version 1)
Quarter: 2014Q4

REPORT INFORMATION
  Report Type: Spontaneous
  Country: TR (occurrence: TR)
  Receive Date: 20141215
  Receipt Date: 20141215
  Transmission Date: 20150529
  Serious: Yes (Death, Hospitalization)
  Sender: FDA-Public Use
  Company Number: PHHY2014TR159606

PATIENT

DRUGS (3)
  1. CARBAMAZEPINE. [Suspect]
     Active Substance: CARBAMAZEPINE
     Indication: OBSESSIVE-COMPULSIVE DISORDER
     Dosage: 400 MG, (10 TABLETS )
     Route: 065
  2. CLOMIPRAMINE [Suspect]
     Active Substance: CLOMIPRAMINE
     Indication: OBSESSIVE-COMPULSIVE DISORDER
     Dosage: 75 MG, 17 TABLETS
     Route: 065
  3. QUETIAPINE [Suspect]
     Active Substance: QUETIAPINE
     Indication: OBSESSIVE-COMPULSIVE DISORDER
     Dosage: 400 MG,(14 TABLETS )
     Route: 065

REACTIONS (12)
  - Oxygen saturation decreased [Unknown]
  - Acute respiratory distress syndrome [Unknown]
  - Pulmonary oedema [Unknown]
  - Pyrexia [Unknown]
  - Multi-organ failure [Fatal]
  - Hypoxia [Not Recovered/Not Resolved]
  - Tachypnoea [Unknown]
  - Pleural effusion [Unknown]
  - Suicide attempt [Unknown]
  - Overdose [Unknown]
  - Hypotension [Unknown]
  - Lung infiltration [Unknown]
